FAERS Safety Report 25508274 (Version 2)
Quarter: 2025Q3

REPORT INFORMATION
  Report Type: Spontaneous
  Country: US (occurrence: US)
  Receive Date: 20250703
  Receipt Date: 20250715
  Transmission Date: 20251021
  Serious: No
  Sender: LUPIN
  Company Number: US-LUPIN PHARMACEUTICALS INC.-2025-05554

PATIENT
  Age: 3 Year
  Weight: 18.5 kg

DRUGS (1)
  1. CEPHALEXIN [Suspect]
     Active Substance: CEPHALEXIN
     Indication: Product used for unknown indication
     Dosage: 9.5 MILLILITER, TID (3 TIMES A DAY)

REACTIONS (3)
  - Incorrect dose administered [Unknown]
  - Product storage error [Unknown]
  - No adverse event [Unknown]
